FAERS Safety Report 9841812 (Version 1)
Quarter: 2013Q4

REPORT INFORMATION
  Report Type: Spontaneous
  Country: US (occurrence: None)
  Receive Date: 20131219
  Receipt Date: 20131219
  Transmission Date: 20140711
  Serious: Yes (Death)
  Sender: FDA-Public Use
  Company Number: 163-20785-13042985

PATIENT
  Age: 61 Year
  Sex: Male

DRUGS (9)
  1. THALOMID (THALIDOMIDE) (50 MILLIGRAM, CAPSULES) [Suspect]
     Indication: B-CELL LYMPHOMA
     Dosage: 50 MG, 28 IN 28 D, PO
     Route: 048
     Dates: start: 20130311
  2. ACYCLOVIR (ACICLOVIR) (ACICLOVIR) [Concomitant]
  3. ASPIRIN (ACETYLSALICYLIC ACID) [Concomitant]
  4. BENADRYL (DIPHENHYDRAMINE) [Concomitant]
  5. LEVAQUIN (LEVOFLOXACIN) [Concomitant]
  6. MS CONTIN (MORPHINE SULFATE) [Concomitant]
  7. MULTIVITAMINS (MULTIVITAMINS) [Concomitant]
  8. PROTONIX (PANTROPAZOLE) [Concomitant]
  9. VORICONAZOLE(VORICONAZOLE) [Concomitant]

REACTIONS (1)
  - Death [None]
